FAERS Safety Report 8801808 (Version 1)
Quarter: 2012Q4

REPORT INFORMATION
  Report Type: 
  Country: US (occurrence: US)
  Receive Date: 20120921
  Receipt Date: 20120921
  Transmission Date: 20130627
  Serious: Yes (Hospitalization, Other)
  Sender: FDA-Public Use
  Company Number: US-ELI_LILLY_AND_COMPANY-US200910007698

PATIENT
  Age: 55 None
  Sex: Male
  Weight: 58.96 kg

DRUGS (11)
  1. ZYPREXA [Suspect]
     Indication: SCHIZOPHRENIA
     Dosage: 40 mg, qd
     Dates: start: 20060329, end: 20070818
  2. LITHIUM [Concomitant]
  3. REMERON [Concomitant]
  4. SEROQUEL [Concomitant]
  5. REGLAN [Concomitant]
  6. PERPHENAZINE [Concomitant]
  7. NALTREXONE [Concomitant]
  8. RISPERDAL [Concomitant]
  9. DEPAKOTE [Concomitant]
  10. COGENTIN [Concomitant]
  11. DOXEPIN [Concomitant]

REACTIONS (15)
  - Sepsis [Unknown]
  - General physical health deterioration [Unknown]
  - Hepatitis viral [Unknown]
  - Pancreatitis [Unknown]
  - Renal failure [Unknown]
  - Anaemia [Unknown]
  - Diabetes mellitus [Not Recovered/Not Resolved]
  - Blood cholesterol abnormal [Unknown]
  - Blood triglycerides increased [Unknown]
  - Hypertension [Unknown]
  - Infection [Unknown]
  - Haematuria [Unknown]
  - Urinary tract infection [Unknown]
  - Blood disorder [Unknown]
  - Prescribed overdose [Unknown]
